FAERS Safety Report 14745201 (Version 1)
Quarter: 2018Q2

REPORT INFORMATION
  Report Type: Spontaneous
  Country: FR (occurrence: FR)
  Receive Date: 20180411
  Receipt Date: 20180411
  Transmission Date: 20180711
  Serious: Yes (Other)
  Sender: FDA-Public Use
  Company Number: FR-MERCK KGAA-2045531

PATIENT
  Sex: Female

DRUGS (2)
  1. NOVOTHYROX [Suspect]
     Active Substance: LEVOTHYROXINE SODIUM
  2. NOVOTHYROX [Suspect]
     Active Substance: LEVOTHYROXINE SODIUM
     Indication: THYROID DISORDER

REACTIONS (12)
  - Psoriatic arthropathy [Recovered/Resolved]
  - Myalgia [None]
  - Fatigue [None]
  - Blood thyroid stimulating hormone decreased [None]
  - Headache [None]
  - Dizziness [None]
  - Social avoidant behaviour [None]
  - Arthralgia [None]
  - Muscle spasms [None]
  - Insomnia [None]
  - Depression [Recovered/Resolved]
  - Gait disturbance [None]
